FAERS Safety Report 22271566 (Version 1)
Quarter: 2023Q2

REPORT INFORMATION
  Report Type: Report from Study
  Country: US (occurrence: US)
  Receive Date: 20230502
  Receipt Date: 20230502
  Transmission Date: 20230722
  Serious: Yes (Other)
  Sender: FDA-Public Use
  Company Number: US-ABBVIE-4313965

PATIENT
  Sex: Female

DRUGS (4)
  1. RINVOQ [Suspect]
     Active Substance: UPADACITINIB
     Indication: Colitis ulcerative
     Dosage: 30 MILLIGRAM
     Route: 048
     Dates: start: 2022
  2. TRAMADOL [Concomitant]
     Active Substance: TRAMADOL
     Indication: Intervertebral disc protrusion
  3. FOLIC ACID [Concomitant]
     Active Substance: FOLIC ACID
     Indication: Anaemia
  4. LIALDA [Concomitant]
     Active Substance: MESALAMINE
     Indication: Colitis ulcerative

REACTIONS (4)
  - Intervertebral disc protrusion [Not Recovered/Not Resolved]
  - Arthritis [Not Recovered/Not Resolved]
  - Sciatica [Not Recovered/Not Resolved]
  - Road traffic accident [Recovered/Resolved]

NARRATIVE: CASE EVENT DATE: 20220101
